FAERS Safety Report 5317973-5 (Version None)
Quarter: 2007Q2

REPORT INFORMATION
  Report Type: 
  Country: None (occurrence: None)
  Receive Date: 20070507
  Receipt Date: 20070430
  Transmission Date: 20071010
  Serious: Yes (Hospitalization)
  Sender: FDA-Public Use
  Company Number: US-MERCK-0705USA00010

PATIENT
  Age: 88 Year
  Sex: Female

DRUGS (6)
  1. JANUVIA [Suspect]
     Indication: BLOOD GLUCOSE
     Route: 048
     Dates: start: 20070401, end: 20070429
  2. BENICAR [Concomitant]
     Route: 065
  3. TOPROL-XL [Concomitant]
     Route: 065
  4. FOSAMAX [Concomitant]
     Route: 065
  5. NAPROXEN [Concomitant]
     Route: 065
  6. DETROL [Concomitant]
     Route: 065

REACTIONS (3)
  - BLOOD GLUCOSE INCREASED [None]
  - HYPONATRAEMIA [None]
  - INFLUENZA LIKE ILLNESS [None]
